FAERS Safety Report 11079894 (Version 1)
Quarter: 2015Q2

REPORT INFORMATION
  Report Type: Report from Study
  Country: DE (occurrence: DE)
  Receive Date: 20150430
  Receipt Date: 20150430
  Transmission Date: 20150821
  Serious: Yes (Other)
  Sender: FDA-Public Use
  Company Number: PHHY2015DE042398

PATIENT
  Age: 76 Year
  Sex: Female
  Weight: 52 kg

DRUGS (9)
  1. EKLIRA [Concomitant]
     Active Substance: ACLIDINIUM BROMIDE
     Indication: PRODUCT USED FOR UNKNOWN INDICATION
     Dosage: 322 OT, UNK
     Route: 065
  2. SALBUTAMOL CT [Concomitant]
     Indication: PRODUCT USED FOR UNKNOWN INDICATION
     Route: 065
  3. GLYCOPYRRONIUM BROMIDE [Suspect]
     Active Substance: GLYCOPYRRONIUM
     Indication: CHRONIC OBSTRUCTIVE PULMONARY DISEASE
     Dosage: 44 OT, QD
     Route: 055
     Dates: start: 20140805
  4. QVA149 [Suspect]
     Active Substance: INVESTIGATIONAL PRODUCT
     Indication: CHRONIC OBSTRUCTIVE PULMONARY DISEASE
     Dosage: 1 DF, UNK (85/43)
     Route: 065
  5. TORASEMID AL [Concomitant]
     Indication: PRODUCT USED FOR UNKNOWN INDICATION
     Dosage: 5 MG
     Route: 065
  6. TORASEMID AL [Concomitant]
     Dosage: 10 MG
     Route: 065
  7. TORASEMID AL [Concomitant]
     Dosage: 20 MG
     Route: 065
  8. MIFLONIDE [Suspect]
     Active Substance: BUDESONIDE
     Indication: PRODUCT USED FOR UNKNOWN INDICATION
     Route: 055
  9. FORMOTEROL [Suspect]
     Active Substance: FORMOTEROL
     Indication: PRODUCT USED FOR UNKNOWN INDICATION
     Dosage: 12 OT
     Route: 065

REACTIONS (3)
  - Exercise tolerance decreased [Not Recovered/Not Resolved]
  - Dyspnoea exertional [Unknown]
  - Dyspnoea at rest [Not Recovered/Not Resolved]
